FAERS Safety Report 16111316 (Version 1)
Quarter: 2019Q1

REPORT INFORMATION
  Report Type: Report from Study
  Country: IN (occurrence: IN)
  Receive Date: 20190325
  Receipt Date: 20190325
  Transmission Date: 20190418
  Serious: Yes (Other)
  Sender: FDA-Public Use
  Company Number: IN-TORRENT-00002170

PATIENT
  Age: 23 Year
  Sex: Female

DRUGS (3)
  1. RISPERIDONE. [Suspect]
     Active Substance: RISPERIDONE
     Indication: PUPILLARY REFLEX IMPAIRED
     Dosage: UNKNOWN
  2. PACITANE [Suspect]
     Active Substance: TRIHEXYPHENIDYL HYDROCHLORIDE
     Indication: PSYCHOTIC DISORDER
     Dosage: UNKNOWN
  3. QUETIAPINE. [Suspect]
     Active Substance: QUETIAPINE
     Indication: PSYCHOTIC DISORDER
     Dosage: UNKNOWN

REACTIONS (3)
  - Hyperprolactinaemia [Unknown]
  - Oligomenorrhoea [Unknown]
  - Macroprolactinaemia [Unknown]
